FAERS Safety Report 4401075-6 (Version None)
Quarter: 2004Q3

REPORT INFORMATION
  Report Type: 
  Country: None (occurrence: None)
  Receive Date: 20040907
  Receipt Date: 20031016
  Transmission Date: 20050211
  Serious: No
  Sender: FDA-Public Use
  Company Number: US-BRISTOL-MYERS SQUIBB COMPANY-12413209

PATIENT
  Sex: Male

DRUGS (1)
  1. COUMADIN [Suspect]
     Indication: DEEP VEIN THROMBOSIS
     Dosage: DOSAGE: 2.5MG DAILY TWICE A WEEKLAND 5MG DAILY FIVE DAYS A WEEK
     Route: 048

REACTIONS (1)
  - ALOPECIA [None]
